FAERS Safety Report 9912917 (Version 3)
Quarter: 2014Q1

REPORT INFORMATION
  Report Type: Other
  Country: AU (occurrence: AU)
  Receive Date: 20140220
  Receipt Date: 20140331
  Transmission Date: 20141002
  Serious: Yes (Death, Hospitalization)
  Sender: FDA-Public Use
  Company Number: AU-SHIRE-ALL1-2014-01202

PATIENT
  Sex: Female
  Weight: 80 kg

DRUGS (1)
  1. VPRIV [Suspect]
     Indication: GAUCHER^S DISEASE
     Dosage: UNK UNK, 1X/2WKS
     Route: 041
     Dates: start: 2000, end: 201403

REACTIONS (1)
  - Metastatic renal cell carcinoma [Fatal]
